FAERS Safety Report 19664954 (Version 2)
Quarter: 2024Q3

REPORT INFORMATION
  Report Type: Spontaneous
  Country: US (occurrence: US)
  Receive Date: 20210806
  Receipt Date: 20240802
  Transmission Date: 20241016
  Serious: No
  Sender: ACCORD
  Company Number: US-ACCORD-220457

PATIENT
  Age: 55 Year
  Sex: Female

DRUGS (3)
  1. DOCETAXEL [Suspect]
     Active Substance: DOCETAXEL\DOCETAXEL ANHYDROUS
     Indication: Breast cancer
     Dosage: NUMBER OF CYCLES: 2 CYCLES
     Route: 042
     Dates: start: 20180501, end: 20180522
  2. CYTOXAN [Suspect]
     Active Substance: CYCLOPHOSPHAMIDE
     Indication: Breast cancer
     Dosage: CYCLE 4
     Route: 042
     Dates: start: 20180501, end: 20180522
  3. NEULASTA [Suspect]
     Active Substance: PEGFILGRASTIM
     Indication: Breast cancer

REACTIONS (5)
  - Dermatochalasis [Unknown]
  - Eczema eyelids [Unknown]
  - Vitreous floaters [Unknown]
  - Dacryostenosis acquired [Recovered/Resolved]
  - Dry eye [Unknown]

NARRATIVE: CASE EVENT DATE: 20180101
